FAERS Safety Report 11221540 (Version 1)
Quarter: 2015Q2

REPORT INFORMATION
  Report Type: Spontaneous
  Country: US (occurrence: None)
  Receive Date: 20150625
  Receipt Date: 20150625
  Transmission Date: 20150821
  Serious: Yes (Disabling)
  Sender: FDA-Public Use
  Company Number: None

PATIENT
  Age: 54 Year
  Sex: Male
  Weight: 115.67 kg

DRUGS (5)
  1. LEVOTHEROXIN [Concomitant]
  2. ASPRIRIN [Concomitant]
  3. RIBIVIRIN [Suspect]
     Active Substance: RIBAVIRIN
     Indication: HEPATITIS C
  4. 3 INHALERS [Concomitant]
  5. SOVALDI [Suspect]
     Active Substance: SOFOSBUVIR

REACTIONS (17)
  - Thyroid disorder [None]
  - Weight increased [None]
  - Dyspnoea [None]
  - Arthralgia [None]
  - Pain [None]
  - Vision blurred [None]
  - Condition aggravated [None]
  - False positive investigation result [None]
  - Sleep disorder [None]
  - Feeling abnormal [None]
  - Gingival bleeding [None]
  - Fatigue [None]
  - Alopecia [None]
  - Depression [None]
  - Dysstasia [None]
  - Mental disorder [None]
  - Asthenia [None]
